FAERS Safety Report 13511980 (Version 1)
Quarter: 2017Q2

REPORT INFORMATION
  Report Type: Spontaneous
  Country: CN (occurrence: CN)
  Receive Date: 20170504
  Receipt Date: 20170504
  Transmission Date: 20170830
  Serious: Yes (Hospitalization)
  Sender: FDA-Public Use
  Company Number: CN-EISAI MEDICAL RESEARCH-EC-2017-027171

PATIENT
  Age: 84 Year
  Sex: Female

DRUGS (5)
  1. DONEPEZIL. [Suspect]
     Active Substance: DONEPEZIL
     Indication: SENILE DEMENTIA
     Route: 048
     Dates: start: 20130815, end: 20161222
  2. OXIRACETAM [Concomitant]
     Active Substance: OXIRACETAM
     Indication: SENILE DEMENTIA
     Dosage: UNKNOWN
     Route: 065
  3. OLANZAPINE. [Concomitant]
     Active Substance: OLANZAPINE
     Indication: SENILE DEMENTIA
     Dosage: UNKNOWN
     Route: 065
  4. DIAZEPAM. [Concomitant]
     Active Substance: DIAZEPAM
     Indication: POOR QUALITY SLEEP
     Route: 065
     Dates: start: 20161225
  5. DONEPEZIL. [Suspect]
     Active Substance: DONEPEZIL
     Route: 048
     Dates: start: 20161223, end: 20161228

REACTIONS (1)
  - Loss of consciousness [Recovering/Resolving]

NARRATIVE: CASE EVENT DATE: 20161225
